FAERS Safety Report 6978434-0 (Version None)
Quarter: 2010Q3

REPORT INFORMATION
  Report Type: 
  Country: None (occurrence: None)
  Receive Date: 20100913
  Receipt Date: 20100906
  Transmission Date: 20110219
  Serious: Yes (Death, Other)
  Sender: FDA-Public Use
  Company Number: US-ROXANE LABORATORIES, INC.-2010-DE-04917GD

PATIENT
  Age: 50 Year
  Sex: Female

DRUGS (3)
  1. ORAMORPH SR [Suspect]
  2. RELISTOR [Suspect]
     Indication: CONSTIPATION
     Dosage: 12 MG
  3. DICLOFENAC [Suspect]

REACTIONS (5)
  - CONSTIPATION [None]
  - GASTRIC ULCER [None]
  - GASTRIC ULCER PERFORATION [None]
  - GENERAL PHYSICAL HEALTH DETERIORATION [None]
  - PERITONITIS [None]
